FAERS Safety Report 24586259 (Version 1)
Quarter: 2024Q4

REPORT INFORMATION
  Report Type: Spontaneous
  Country: IT (occurrence: IT)
  Receive Date: 20241106
  Receipt Date: 20241106
  Transmission Date: 20250115
  Serious: Yes (Other)
  Sender: GLAXOSMITHKLINE
  Company Number: IT-GSK-IT2024GSK135106

PATIENT

DRUGS (6)
  1. NIRAPARIB [Suspect]
     Active Substance: NIRAPARIB
     Indication: Ovarian cancer
     Dosage: 200 MG, 1D MONOTHERAPY
     Dates: start: 202210
  2. NIRAPARIB [Suspect]
     Active Substance: NIRAPARIB
     Dosage: 100 MG, 1D (RESUMED)
     Dates: start: 2023
  3. CARBOPLATIN [Concomitant]
     Active Substance: CARBOPLATIN
     Indication: Ovarian cancer
     Dosage: UNK
  4. PACLITAXEL [Concomitant]
     Active Substance: PACLITAXEL
     Indication: Ovarian cancer
     Dosage: UNK
  5. PLATINUM [Concomitant]
     Active Substance: PLATINUM
     Indication: Chronic lymphocytic leukaemia
     Dosage: UNK LAST TWO CYCLES
     Dates: end: 202209
  6. PLATINUM [Concomitant]
     Active Substance: PLATINUM
     Indication: Lymphocytic lymphoma

REACTIONS (6)
  - Pancytopenia [Recovered/Resolved]
  - Spontaneous haematoma [Unknown]
  - Conjunctival haemorrhage [Unknown]
  - Eyelid bleeding [Unknown]
  - Bone marrow failure [Unknown]
  - Bone marrow leukaemic cell infiltration [Unknown]
